FAERS Safety Report 8048621-1 (Version None)
Quarter: 2011Q4

REPORT INFORMATION
  Report Type: 
  Country: None (occurrence: None)
  Receive Date: 20111230
  Receipt Date: 20111216
  Transmission Date: 20120403
  Serious: Yes (Other)
  Sender: FDA-Public Use
  Company Number: 2011030614

PATIENT
  Age: 8 Year
  Sex: Female

DRUGS (6)
  1. PRIVIGEN [Suspect]
  2. PRIVIGEN [Suspect]
     Indication: PEDIATRIC AUTOIMMUNE NEUROPSYCHIATRIC DISORDERS ASSOCIATED WITH STREPTOCOCCAL INFECTION
     Dosage: (30 G 1X/MONTH) ; 36 G 1X/MONTH, 20 GRAM) ; (10 GRAM) ; (5 GRAM)
     Dates: start: 20110601
  3. PRIVIGEN [Suspect]
     Indication: PEDIATRIC AUTOIMMUNE NEUROPSYCHIATRIC DISORDERS ASSOCIATED WITH STREPTOCOCCAL INFECTION
     Dosage: (30 G 1X/MONTH) ; 36 G 1X/MONTH, 20 GRAM) ; (10 GRAM) ; (5 GRAM)
     Dates: start: 20111201
  4. PRIVIGEN [Suspect]
     Indication: PEDIATRIC AUTOIMMUNE NEUROPSYCHIATRIC DISORDERS ASSOCIATED WITH STREPTOCOCCAL INFECTION
     Dosage: (30 G 1X/MONTH) ; 36 G 1X/MONTH, 20 GRAM) ; (10 GRAM) ; (5 GRAM)
     Dates: start: 20111201
  5. PRIVIGEN [Suspect]
     Indication: PEDIATRIC AUTOIMMUNE NEUROPSYCHIATRIC DISORDERS ASSOCIATED WITH STREPTOCOCCAL INFECTION
     Dosage: (30 G 1X/MONTH) ; 36 G 1X/MONTH, 20 GRAM) ; (10 GRAM) ; (5 GRAM)
     Dates: start: 20111201
  6. PRIVIGEN [Suspect]

REACTIONS (11)
  - OBSESSIVE-COMPULSIVE DISORDER [None]
  - TIC [None]
  - DYSTONIA [None]
  - INFUSION RELATED REACTION [None]
  - MENINGITIS ASEPTIC [None]
  - NAUSEA [None]
  - HEADACHE [None]
  - PYREXIA [None]
  - PHOTOSENSITIVITY REACTION [None]
  - MUSCULOSKELETAL STIFFNESS [None]
  - PEDIATRIC AUTOIMMUNE NEUROPSYCHIATRIC DISORDERS ASSOCIATED WITH STREPTOCOCCAL INFECTION [None]
